FAERS Safety Report 14356226 (Version 1)
Quarter: 2018Q1

REPORT INFORMATION
  Report Type: Spontaneous
  Country: HK (occurrence: HK)
  Receive Date: 20180105
  Receipt Date: 20180105
  Transmission Date: 20180509
  Serious: Yes (Death, Other)
  Sender: FDA-Public Use
  Company Number: PHHY2018HK000650

PATIENT
  Age: 71 Year
  Sex: Female

DRUGS (4)
  1. MIDAZOLAM [Concomitant]
     Active Substance: MIDAZOLAM HYDROCHLORIDE
     Indication: STATUS EPILEPTICUS
     Route: 042
  2. VALPROATE SODIUM. [Suspect]
     Active Substance: VALPROATE SODIUM
     Indication: STATUS EPILEPTICUS
     Dosage: 400 MG, Q8H
     Route: 042
  3. VALPROATE SODIUM. [Suspect]
     Active Substance: VALPROATE SODIUM
     Dosage: 1200 MG/DAY (18 MG/KG/DAY)
     Route: 042
  4. NIMODIPINE. [Concomitant]
     Active Substance: NIMODIPINE
     Indication: STATUS EPILEPTICUS
     Route: 065

REACTIONS (7)
  - Multiple organ dysfunction syndrome [Fatal]
  - Hyperammonaemic encephalopathy [Fatal]
  - Depressed level of consciousness [Fatal]
  - Lethargy [Fatal]
  - Status epilepticus [Unknown]
  - Rebound effect [Unknown]
  - Brain oedema [Fatal]
